FAERS Safety Report 9053449 (Version 2)
Quarter: 2013Q1

REPORT INFORMATION
  Report Type: Spontaneous
  Country: US (occurrence: US)
  Receive Date: 20130208
  Receipt Date: 20130220
  Transmission Date: 20140127
  Serious: No
  Sender: FDA-Public Use
  Company Number: US-009507513-1301USA013232

PATIENT
  Age: 20 None
  Sex: Female
  Weight: 86.17 kg

DRUGS (1)
  1. NEXPLANON [Suspect]
     Indication: CONTRACEPTION
     Dosage: 1 DF, UNK
     Route: 059
     Dates: start: 20121211, end: 20130128

REACTIONS (5)
  - Implant site infection [Unknown]
  - Device expulsion [Unknown]
  - Complication of device insertion [Unknown]
  - Product quality issue [Unknown]
  - Device component issue [Unknown]
